FAERS Safety Report 12373330 (Version 1)
Quarter: 2016Q2

REPORT INFORMATION
  Report Type: Spontaneous
  Country: JP (occurrence: JP)
  Receive Date: 20160516
  Receipt Date: 20160516
  Transmission Date: 20160815
  Serious: Yes (Other)
  Sender: FDA-Public Use
  Company Number: JP-BRISTOL-MYERS SQUIBB COMPANY-BMS-2016-037702

PATIENT
  Age: 62 Year
  Sex: Female
  Weight: 39.6 kg

DRUGS (5)
  1. ASUNAPREVIR [Suspect]
     Active Substance: ASUNAPREVIR
     Indication: CHRONIC HEPATITIS C
     Dosage: 100 MG, BID
     Route: 065
     Dates: start: 20150303, end: 20150307
  2. DAKLINZA [Suspect]
     Active Substance: DACLATASVIR
     Dosage: 60 MG, QD
     Route: 065
     Dates: start: 20150317
  3. NORVASC [Concomitant]
     Active Substance: AMLODIPINE BESYLATE
     Indication: PRODUCT USED FOR UNKNOWN INDICATION
     Dosage: 2.5 MG, QD
     Route: 048
  4. DAKLINZA [Suspect]
     Active Substance: DACLATASVIR
     Indication: CHRONIC HEPATITIS C
     Dosage: 60 MG, QD
     Route: 065
     Dates: start: 20150303, end: 20150307
  5. ASUNAPREVIR [Suspect]
     Active Substance: ASUNAPREVIR
     Dosage: 100 MG, BID
     Route: 065
     Dates: start: 20150317

REACTIONS (1)
  - Pneumonia [Recovered/Resolved]

NARRATIVE: CASE EVENT DATE: 20151027
